FAERS Safety Report 6240269-4 (Version None)
Quarter: 2009Q2

REPORT INFORMATION
  Report Type: 
  Country: None (occurrence: None)
  Receive Date: 20090623
  Receipt Date: 20080610
  Transmission Date: 20091009
  Serious: No
  Sender: FDA-Public Use
  Company Number: US-ASTRAZENECA-2008UW10507

PATIENT
  Age: 90 Year
  Sex: Female

DRUGS (2)
  1. PULMICORT RESPULES [Suspect]
     Dosage: 0.5 MG/ML
     Route: 055
  2. IPRATROPIUM BROMIDE [Concomitant]

REACTIONS (3)
  - ALOPECIA [None]
  - INSOMNIA [None]
  - PRURITUS [None]
